FAERS Safety Report 19509263 (Version 1)
Quarter: 2021Q3

REPORT INFORMATION
  Report Type: Spontaneous
  Country: US (occurrence: US)
  Receive Date: 20210709
  Receipt Date: 20210709
  Transmission Date: 20211014
  Serious: No
  Sender: FDA-Public Use
  Company Number: US-AMGEN-USASP2021103540

PATIENT
  Age: 81 Year
  Sex: Female

DRUGS (11)
  1. DHEA [Concomitant]
     Active Substance: PRASTERONE
  2. LEVOTHYROXINE. [Concomitant]
     Active Substance: LEVOTHYROXINE
  3. MELOXICAM. [Concomitant]
     Active Substance: MELOXICAM
  4. JAKAFI [Concomitant]
     Active Substance: RUXOLITINIB
  5. TURMERIC [CURCUMA LONGA] [Concomitant]
     Active Substance: HERBALS\TURMERIC
  6. SULINDAC. [Concomitant]
     Active Substance: SULINDAC
  7. METHOTREXATE. [Concomitant]
     Active Substance: METHOTREXATE
  8. OTEZLA [Suspect]
     Active Substance: APREMILAST
     Indication: OFF LABEL USE
  9. ZINC. [Concomitant]
     Active Substance: ZINC
  10. OTEZLA [Suspect]
     Active Substance: APREMILAST
     Indication: RHEUMATOID ARTHRITIS
     Dosage: 30 MILLIGRAM, BID
     Route: 048
     Dates: start: 20210410
  11. FOLIC ACID. [Concomitant]
     Active Substance: FOLIC ACID

REACTIONS (2)
  - Off label use [Unknown]
  - Headache [Not Recovered/Not Resolved]

NARRATIVE: CASE EVENT DATE: 20210410
